FAERS Safety Report 10012772 (Version 1)
Quarter: 2014Q1

REPORT INFORMATION
  Report Type: Spontaneous
  Country: US (occurrence: US)
  Receive Date: 20140314
  Receipt Date: 20140314
  Transmission Date: 20141002
  Serious: Yes (Other)
  Sender: FDA-Public Use
  Company Number: CHPA2014US003813

PATIENT
  Age: 46 Year
  Sex: Male

DRUGS (3)
  1. VOLTAREN GEL [Suspect]
     Indication: OCCIPITAL NEURALGIA
     Dosage: 2 G, BID
     Route: 061
     Dates: start: 20140305
  2. VOLTAREN GEL [Suspect]
     Indication: OFF LABEL USE
  3. ATENOLOL [Concomitant]
     Indication: HEART RATE INCREASED
     Route: 048

REACTIONS (5)
  - Tachycardia [Recovered/Resolved]
  - Throat irritation [Recovered/Resolved]
  - Abdominal discomfort [Recovered/Resolved]
  - Somnolence [Recovered/Resolved]
  - Drug administered at inappropriate site [Unknown]
